FAERS Safety Report 20996819 (Version 2)
Quarter: 2022Q2

REPORT INFORMATION
  Report Type: Report from Study
  Country: IT (occurrence: IT)
  Receive Date: 20220623
  Receipt Date: 20220628
  Transmission Date: 20220721
  Serious: Yes (Death, Other)
  Sender: FDA-Public Use
  Company Number: IT-BRISTOL-MYERS SQUIBB COMPANY-2022-056858

PATIENT
  Age: 66 Year
  Sex: Male
  Weight: 82 kg

DRUGS (12)
  1. PLACEBO [Suspect]
     Active Substance: UNSPECIFIED INGREDIENT
     Indication: Bladder cancer
     Dosage: 1 TAB?PRIOR TO EVENT MOST RECENT DOSE RECEIVED ON 29-APR-2021.
     Route: 065
     Dates: start: 20200807, end: 20210503
  2. NIVOLUMAB [Suspect]
     Active Substance: NIVOLUMAB
     Indication: Bladder cancer
     Dosage: PRIOR TO EVENT MOST RECENT DOSE OF 480 MG WAS RECEIVED ON 14-APR-2021.
     Route: 065
     Dates: start: 20200807, end: 20210503
  3. CISPLATIN [Suspect]
     Active Substance: CISPLATIN
     Indication: Bladder cancer
     Dosage: PRIOR TO EVENT MOST RECENT DOSE RECEIVED ON 12-OCT-2020.
     Route: 065
     Dates: start: 20200807, end: 20210503
  4. GEMCITABINE HYDROCHLORIDE [Suspect]
     Active Substance: GEMCITABINE HYDROCHLORIDE
     Indication: Bladder cancer
     Dosage: PRIOR TO EVENT MOST RECENT DOSE OF 1500 MG RECEIVED ON 19-OCT-2020.
     Route: 065
     Dates: start: 20200807, end: 20210503
  5. PANTOPRAZOLE SODIUM [Concomitant]
     Active Substance: PANTOPRAZOLE SODIUM
     Indication: Product used for unknown indication
     Route: 048
     Dates: start: 20200807
  6. SIMVASTATIN [Concomitant]
     Active Substance: SIMVASTATIN
     Indication: Product used for unknown indication
     Route: 048
  7. PANTOPRAZOLE [Concomitant]
     Active Substance: PANTOPRAZOLE
     Indication: Product used for unknown indication
     Route: 048
     Dates: start: 20210219
  8. ALFUZOSIN HYDROCHLORIDE [Concomitant]
     Active Substance: ALFUZOSIN HYDROCHLORIDE
     Indication: Product used for unknown indication
     Route: 048
  9. ZOFENOPRIL [Concomitant]
     Active Substance: ZOFENOPRIL
     Indication: Product used for unknown indication
     Route: 048
  10. EZETIMIBE [Concomitant]
     Active Substance: EZETIMIBE
     Indication: Product used for unknown indication
     Route: 048
  11. ACETAMINOPHEN [Concomitant]
     Active Substance: ACETAMINOPHEN
     Indication: Product used for unknown indication
     Route: 048
  12. CARDIOASAWIN [Concomitant]
     Indication: Product used for unknown indication
     Route: 048
     Dates: start: 20200810

REACTIONS (1)
  - Death [Fatal]

NARRATIVE: CASE EVENT DATE: 20210714
